FAERS Safety Report 19551500 (Version 1)
Quarter: 2021Q3

REPORT INFORMATION
  Report Type: Spontaneous
  Country: ES (occurrence: ES)
  Receive Date: 20210714
  Receipt Date: 20210714
  Transmission Date: 20211014
  Serious: Yes (Other)
  Sender: FDA-Public Use
  Company Number: ES-ALIMERA SCIENCES LIMITED-ES-A16013-21-000149

PATIENT

DRUGS (1)
  1. ILUVIEN [Suspect]
     Active Substance: FLUOCINOLONE ACETONIDE
     Indication: MACULAR OEDEMA
     Dosage: 0.25 MICROGRAM, QD?UNKNOWN EYE
     Route: 031
     Dates: start: 202101

REACTIONS (4)
  - Blindness [Unknown]
  - Device dislocation [Unknown]
  - Corneal decompensation [Recovering/Resolving]
  - Off label use [Unknown]

NARRATIVE: CASE EVENT DATE: 202101
